FAERS Safety Report 24916432 (Version 1)
Quarter: 2025Q1

REPORT INFORMATION
  Report Type: Spontaneous
  Country: JP (occurrence: JP)
  Receive Date: 20250203
  Receipt Date: 20250203
  Transmission Date: 20250408
  Serious: Yes (Death)
  Sender: SANDOZ
  Company Number: JP-ONO-2024JP025154

PATIENT
  Age: 76 Year
  Sex: Male

DRUGS (2)
  1. RIVASTIGMINE [Suspect]
     Active Substance: RIVASTIGMINE
     Indication: Dementia
     Route: 062
  2. RIVASTIGMINE [Suspect]
     Active Substance: RIVASTIGMINE
     Indication: Dementia Alzheimer^s type
     Route: 062

REACTIONS (4)
  - Adverse event [Fatal]
  - Wrong technique in product usage process [Unknown]
  - Accidental overdose [Unknown]
  - Off label use [Unknown]
